FAERS Safety Report 4783218-8 (Version None)
Quarter: 2005Q3

REPORT INFORMATION
  Report Type: 
  Country: None (occurrence: None)
  Receive Date: 20050928
  Receipt Date: 20050928
  Transmission Date: 20060218
  Serious: Yes (Death, Hospitalization)
  Sender: FDA-Public Use
  Company Number: None

PATIENT
  Age: 84 Year
  Sex: Female
  Weight: 186.4 kg

DRUGS (10)
  1. WARFARIN SODIUM [Suspect]
     Indication: PULMONARY EMBOLISM
     Dosage: 3 MG PO QD
     Route: 048
  2. LASIX [Concomitant]
  3. ZAROXOLYN [Concomitant]
  4. POTASSIUM [Concomitant]
  5. PROTONIX [Concomitant]
  6. COMBIVENT [Concomitant]
  7. CITALOPRAM [Concomitant]
  8. ASPIRIN [Concomitant]
  9. DILTIAZEM [Concomitant]
  10. OCUVITE [Concomitant]

REACTIONS (6)
  - ANORECTAL DISORDER [None]
  - INTERNATIONAL NORMALISED RATIO INCREASED [None]
  - OEDEMA PERIPHERAL [None]
  - PNEUMOPERITONEUM [None]
  - RECTAL HAEMORRHAGE [None]
  - REFUSAL OF TREATMENT BY PATIENT [None]
